FAERS Safety Report 5196791-5 (Version None)
Quarter: 2007Q1

REPORT INFORMATION
  Report Type: 
  Country: None (occurrence: None)
  Receive Date: 20070103
  Receipt Date: 20061221
  Transmission Date: 20070707
  Serious: Yes (Other)
  Sender: FDA-Public Use
  Company Number: PHBS2006JP19875

PATIENT

DRUGS (2)
  1. CAFERGOT [Suspect]
     Indication: MIGRAINE
     Route: 048
  2. DIHYDROERGOTAMINE MESYLATE [Suspect]
     Indication: MIGRAINE
     Route: 048

REACTIONS (1)
  - HYPOTHYROIDISM [None]
